FAERS Safety Report 8759373 (Version 1)
Quarter: 2012Q4

REPORT INFORMATION
  Report Type: 
  Country: DE (occurrence: DE)
  Receive Date: 20120829
  Receipt Date: 20120829
  Transmission Date: 20130627
  Serious: Yes (Other)
  Sender: FDA-Public Use
  Company Number: DE-BAYER-2012-086998

PATIENT

DRUGS (4)
  1. XARELTO [Suspect]
     Indication: ATRIAL FIBRILLATION
  2. XARELTO [Interacting]
     Indication: CEREBROVASCULAR ACCIDENT PROPHYLAXIS
  3. CLOPIDOGREL [Interacting]
     Indication: ATRIAL FIBRILLATION
     Dosage: UNK
  4. ACETYLSALICYLIC ACID (} 100 MG) [Interacting]
     Indication: ATRIAL FIBRILLATION

REACTIONS (1)
  - Urinary bladder haemorrhage [None]
